FAERS Safety Report 7064825-9 (Version None)
Quarter: 2010Q4

REPORT INFORMATION
  Report Type: 
  Country: None (occurrence: None)
  Receive Date: 20101027
  Receipt Date: 19871207
  Transmission Date: 20110411
  Serious: Yes (Death, Life-Threatening)
  Sender: FDA-Public Use
  Company Number: US-ROCHE-870201468001

PATIENT
  Age: 71 Year
  Sex: Male
  Weight: 55.8 kg

DRUGS (6)
  1. VERSED [Suspect]
     Route: 042
     Dates: start: 19871127, end: 19871127
  2. CAPOTEN [Concomitant]
     Route: 065
  3. CATAPRES [Concomitant]
     Route: 065
  4. PROCARDIA [Concomitant]
     Route: 065
  5. PROVENTIL [Concomitant]
     Route: 065
  6. DEMEROL [Concomitant]
     Route: 042
     Dates: start: 19871127, end: 19871127

REACTIONS (2)
  - RENAL FAILURE [None]
  - RESPIRATORY ARREST [None]
